FAERS Safety Report 20469828 (Version 1)
Quarter: 2022Q1

REPORT INFORMATION
  Report Type: Spontaneous
  Country: US (occurrence: None)
  Receive Date: 20220213
  Receipt Date: 20220213
  Transmission Date: 20220424
  Serious: Yes (Other)
  Sender: FDA-Public Use
  Company Number: None

PATIENT
  Age: 62 Year
  Weight: 61.65 kg

DRUGS (3)
  1. BUDESONIDE [Suspect]
     Active Substance: BUDESONIDE
     Indication: Colitis
     Dosage: OTHER QUANTITY : 1 CAPSULE(S);?
     Route: 048
     Dates: start: 20211209, end: 20220203
  2. ESCITALOPRA [Concomitant]
  3. VANADIUM [Concomitant]
     Active Substance: VANADIUM

REACTIONS (4)
  - Dry skin [None]
  - Skin exfoliation [None]
  - Decreased appetite [None]
  - Constipation [None]

NARRATIVE: CASE EVENT DATE: 20220117
